FAERS Safety Report 9305088 (Version 1)
Quarter: 2013Q2

REPORT INFORMATION
  Report Type: Spontaneous
  Country: US (occurrence: None)
  Receive Date: 20130521
  Receipt Date: 20130521
  Transmission Date: 20140414
  Serious: Yes (Other)
  Sender: FDA-Public Use
  Company Number: NSR_01140_2013

PATIENT
  Age: 75 Year
  Sex: Female

DRUGS (11)
  1. METOCLOPRAMIDE [Suspect]
     Indication: GASTROOESOPHAGEAL REFLUX DISEASE
     Route: 048
     Dates: start: 2001, end: 201102
  2. TRAZODONE [Concomitant]
  3. METFORMIN [Concomitant]
  4. LAMOTRIGINE [Concomitant]
  5. OMEPRAZOLE [Concomitant]
  6. ATENOLOL [Concomitant]
  7. IRBESARTAN [Concomitant]
  8. SIMVASTATIN [Concomitant]
  9. GLIPIZIDE [Concomitant]
  10. ASPIRIN [Concomitant]
  11. AMLODIPINE [Concomitant]

REACTIONS (3)
  - Fall [None]
  - Drug intolerance [None]
  - Parkinsonism [None]
